FAERS Safety Report 7704647-6 (Version None)
Quarter: 2011Q3

REPORT INFORMATION
  Report Type: 
  Country: None (occurrence: None)
  Receive Date: 20110823
  Receipt Date: 20110819
  Transmission Date: 20111222
  Serious: Yes (Other)
  Sender: FDA-Public Use
  Company Number: GB-GLAXOSMITHKLINE-B0740878A

PATIENT
  Age: 64 Year
  Sex: Male

DRUGS (6)
  1. LAMICTAL [Suspect]
     Indication: PROPHYLAXIS
     Dosage: 25MG PER DAY
  2. RANITIDINE [Concomitant]
     Indication: GASTROOESOPHAGEAL REFLUX DISEASE
     Dosage: 150MG PER DAY
     Dates: start: 20010101
  3. TEGRETOL [Concomitant]
     Indication: PROPHYLAXIS
     Dosage: 400MG PER DAY
     Dates: start: 20010101
  4. LIPITOR [Concomitant]
     Indication: HYPERCHOLESTEROLAEMIA
     Dosage: 40MG PER DAY
  5. FUROSEMIDE [Concomitant]
     Indication: OLIGURIA
     Dates: start: 20100101
  6. LEVOTHYROXINE SODIUM [Concomitant]
     Indication: HYPOTHYROIDISM
     Dosage: 150MG PER DAY
     Dates: start: 20000101

REACTIONS (9)
  - SKIN REACTION [None]
  - BALANCE DISORDER [None]
  - DIZZINESS [None]
  - ARTHRALGIA [None]
  - PYREXIA [None]
  - NAUSEA [None]
  - HEADACHE [None]
  - ABASIA [None]
  - SOMNOLENCE [None]
